FAERS Safety Report 9457192 (Version 5)
Quarter: 2013Q3

REPORT INFORMATION
  Report Type: Spontaneous
  Country: US (occurrence: US)
  Receive Date: 20130814
  Receipt Date: 20130925
  Transmission Date: 20140515
  Serious: Yes (Hospitalization, Disabling)
  Sender: FDA-Public Use
  Company Number: US-MERCK-1308USA004664

PATIENT
  Sex: Male

DRUGS (4)
  1. ZOCOR [Suspect]
     Indication: BLOOD CHOLESTEROL INCREASED
     Dosage: 80 MG, QD
     Route: 048
     Dates: start: 2005, end: 20110602
  2. ZOCOR [Suspect]
     Dosage: 5 MG, QD
     Route: 048
     Dates: start: 19990208, end: 19990429
  3. ZOCOR [Suspect]
     Dosage: 20 MG, QD
     Route: 048
     Dates: start: 20001025, end: 20060402
  4. GEMFIBROZIL [Suspect]
     Dosage: 600 MG, BID
     Route: 048

REACTIONS (15)
  - Muscle atrophy [Not Recovered/Not Resolved]
  - Adverse event [Not Recovered/Not Resolved]
  - Dysstasia [Not Recovered/Not Resolved]
  - Coronary artery disease [Unknown]
  - Chronic obstructive pulmonary disease [Unknown]
  - Tremor [Unknown]
  - Fall [Unknown]
  - Balance disorder [Unknown]
  - Scar [Unknown]
  - Arteriosclerosis coronary artery [Unknown]
  - Bursitis [Unknown]
  - Tinnitus [Unknown]
  - Abasia [Not Recovered/Not Resolved]
  - Hypertensive heart disease [Unknown]
  - Adverse event [Unknown]
